FAERS Safety Report 8755757 (Version 3)
Quarter: 2013Q1

REPORT INFORMATION
  Report Type: Spontaneous
  Country: JP (occurrence: JP)
  Receive Date: 20120827
  Receipt Date: 20130128
  Transmission Date: 20140127
  Serious: Yes (Other)
  Sender: FDA-Public Use
  Company Number: JP-009507513-1208JPN010541

PATIENT
  Age: 65 Year
  Sex: Female

DRUGS (8)
  1. FOSAMAC TABLETS 35MG [Suspect]
     Indication: OSTEOPOROSIS
     Dosage: UNK
     Route: 048
     Dates: start: 20080223
  2. BENET [Suspect]
     Indication: OSTEOPOROSIS
     Dosage: 2.5 MG, QAM
     Route: 048
     Dates: start: 20040131, end: 20080208
  3. PREDONINE [Concomitant]
     Indication: ASTHMA
     Dosage: 3 MG, QD, Y OF TIME OF 20MG ON THE FIRST OR LESS
     Route: 048
  4. D-ALPHA [Concomitant]
     Indication: OSTEOPOROSIS
     Dosage: 0.5 MICROGRAM, AFTER THE BREAKFAST
     Route: 048
     Dates: start: 20070921, end: 20091128
  5. D-ALPHA [Concomitant]
     Dosage: UNK
     Route: 048
     Dates: start: 20120203, end: 20121128
  6. ONEALFA [Concomitant]
     Indication: OSTEOPOROSIS
     Dosage: 0.5 MICROGRAM, AFTER THE BREAKFAST
     Route: 048
     Dates: start: 20101213, end: 20111130
  7. EVISTA [Concomitant]
     Indication: OSTEOPOROSIS
     Dosage: 60 MG, AFTER THE BREAKFAST
     Route: 048
     Dates: start: 20120203
  8. EDIROL [Concomitant]
     Indication: OSTEOPOROSIS
     Dosage: 0.75 MICROGRAM, QAM
     Route: 048
     Dates: start: 20121129

REACTIONS (2)
  - Femur fracture [Unknown]
  - Femur fracture [Unknown]
